FAERS Safety Report 9168103 (Version 2)
Quarter: 2013Q1

REPORT INFORMATION
  Report Type: Spontaneous
  Country: RO (occurrence: None)
  Receive Date: 20130307
  Receipt Date: 20130319
  Transmission Date: 20140127
  Serious: Yes (Hospitalization)
  Sender: FDA-Public Use
  Company Number: AUR-APL-2013-02074

PATIENT
  Age: 74 Year
  Sex: Female

DRUGS (7)
  1. SIMVASTATIN [Suspect]
     Indication: PRODUCT USED FOR UNKNOWN INDICATION
     Dosage: 20 MG (20 MG, 1 IN 1 D), UNK
  2. SIMVASTATIN [Suspect]
     Dosage: 20 MG (20 MG, 1 IN 1 D), UNK
  3. FLUCONAZOLE [Suspect]
     Indication: CANDIDA INFECTION
     Dosage: 150 MG, 2 TABLETS/WEEK, UNKNOWN
  4. INDAPAMIDE (INDAPAMIDE) [Concomitant]
  5. TRIMETAZIDINE (TRIMETAZIDINE) [Concomitant]
  6. LOSARTAN (LOSARTAN) [Concomitant]
  7. MEBEVERINE (MEBEVERINE) [Concomitant]

REACTIONS (8)
  - Myalgia [None]
  - Abdominal pain [None]
  - Spinal pain [None]
  - Blood fibrinogen increased [None]
  - Blood cholesterol increased [None]
  - Blood creatine phosphokinase increased [None]
  - Laboratory test abnormal [None]
  - Candida infection [None]
